FAERS Safety Report 19449283 (Version 1)
Quarter: 2021Q2

REPORT INFORMATION
  Report Type: Spontaneous
  Country: DE (occurrence: DE)
  Receive Date: 20210622
  Receipt Date: 20210622
  Transmission Date: 20210717
  Serious: Yes (Hospitalization, Other)
  Sender: FDA-Public Use
  Company Number: DE-MACLEODS PHARMACEUTICALS US LTD-MAC2021031631

PATIENT

DRUGS (7)
  1. SUFENTANIL [Concomitant]
     Active Substance: SUFENTANIL
     Indication: MAINTENANCE OF ANAESTHESIA
     Dosage: UNK
     Route: 042
  2. PROPOFOL. [Concomitant]
     Active Substance: PROPOFOL
     Indication: MAINTENANCE OF ANAESTHESIA
     Dosage: UNK
     Route: 042
  3. LIDOCAINE. [Suspect]
     Active Substance: LIDOCAINE
     Indication: PERIPHERAL NERVE OPERATION
  4. ROPIVACAINE. [Suspect]
     Active Substance: ROPIVACAINE HYDROCHLORIDE
     Indication: LOCAL ANAESTHESIA
     Dosage: 8 MILLILITER, 6?8 ML/H, 1 HOUR, 0.2 PERCENT, INFUSION
     Route: 065
  5. ROPIVACAINE. [Suspect]
     Active Substance: ROPIVACAINE HYDROCHLORIDE
     Indication: PERIPHERAL NERVE OPERATION
     Dosage: 6 MILLILITER, 6?8 ML/H, INFUSION
     Route: 065
  6. LIDOCAINE. [Suspect]
     Active Substance: LIDOCAINE
     Indication: LOCAL ANAESTHESIA
     Dosage: 20 MILLILITER, SINGLE, INTERSCALENE BRACHIAL PLEXUS BLOCK, INJECTION, 1 PERCENT
     Route: 065
  7. ROPIVACAINE. [Suspect]
     Active Substance: ROPIVACAINE HYDROCHLORIDE
     Dosage: 20 MILLILITER, SINGLE, INTERSCALENE BRACHIAL PLEXUS BLOCK, INJECTION  0.75 PERCENT
     Route: 065

REACTIONS (3)
  - Altered state of consciousness [Recovered/Resolved]
  - Neurotoxicity [Recovering/Resolving]
  - Nervous system disorder [Recovering/Resolving]
